FAERS Safety Report 26207729 (Version 1)
Quarter: 2025Q4

REPORT INFORMATION
  Report Type: Spontaneous
  Country: CN (occurrence: CN)
  Receive Date: 20251229
  Receipt Date: 20251229
  Transmission Date: 20260118
  Serious: Yes (Life-Threatening, Hospitalization, Other)
  Sender: BAYER HEALTHCARE PHARMACEUTICALS INC.
  Company Number: CN-BAYER-2025A165746

PATIENT
  Age: 70 Year
  Sex: Female
  Weight: 74 kg

DRUGS (8)
  1. ASPIRIN [Interacting]
     Active Substance: ASPIRIN
     Indication: Antiplatelet therapy
     Dosage: 100 MG, QD
     Route: 048
     Dates: start: 20250701, end: 20251126
  2. GLUCOBAY [Suspect]
     Active Substance: ACARBOSE
     Indication: Type 2 diabetes mellitus
     Dosage: 150 MG, TID
     Route: 048
     Dates: start: 20230101, end: 20251205
  3. ADALAT [Suspect]
     Active Substance: NIFEDIPINE
     Indication: Hypertension
     Dosage: 30 MG, QD
     Route: 048
     Dates: start: 20230101, end: 20251205
  4. CLOPIDOGREL BISULFATE [Interacting]
     Active Substance: CLOPIDOGREL BISULFATE
     Indication: Antiplatelet therapy
     Dosage: 75 MG, QD
     Route: 048
     Dates: start: 20250701, end: 20251128
  5. INDOBUFEN [Interacting]
     Active Substance: INDOBUFEN
     Indication: Antiplatelet therapy
     Dosage: 0.1 G, BID
     Route: 048
     Dates: start: 20251127, end: 20251128
  6. REPAGLINIDE [Concomitant]
     Active Substance: REPAGLINIDE
     Indication: Type 2 diabetes mellitus
     Dosage: 1 MG, TID
     Route: 048
     Dates: start: 20230101, end: 20251205
  7. INSULIN GLARGINE [Concomitant]
     Active Substance: INSULIN GLARGINE
     Indication: Type 2 diabetes mellitus
     Dosage: 26 IU, HS
     Route: 058
     Dates: start: 20230101, end: 20251205
  8. ATORVASTATIN CALCIUM [Concomitant]
     Active Substance: ATORVASTATIN CALCIUM
     Indication: Myocardial infarction
     Dosage: 20 MG, HS
     Route: 048
     Dates: start: 20250701, end: 20251205

REACTIONS (14)
  - Upper gastrointestinal haemorrhage [Recovering/Resolving]
  - Pneumonia [Recovering/Resolving]
  - Myocardial infarction [Recovering/Resolving]
  - Angina unstable [Recovering/Resolving]
  - Loss of consciousness [Recovered/Resolved]
  - Blood loss anaemia [Recovering/Resolving]
  - Haematemesis [Recovered/Resolved]
  - Blood glucose abnormal [None]
  - Chest pain [Recovering/Resolving]
  - Chest discomfort [Recovering/Resolving]
  - Nausea [Recovering/Resolving]
  - Vomiting [Recovered/Resolved]
  - Pyrexia [Recovering/Resolving]
  - Electrolyte imbalance [Recovering/Resolving]

NARRATIVE: CASE EVENT DATE: 20250701
